FAERS Safety Report 23247884 (Version 1)
Quarter: 2023Q4

REPORT INFORMATION
  Report Type: Other
  Country: ZA (occurrence: None)
  Receive Date: 20231130
  Receipt Date: 20231130
  Transmission Date: 20240110
  Serious: Yes (Other)
  Sender: FDA-Public Use
  Company Number: ZA-ROCHE-3463687

PATIENT
  Sex: Female

DRUGS (1)
  1. OCREVUS [Suspect]
     Active Substance: OCRELIZUMAB
     Indication: Primary progressive multiple sclerosis
     Dosage: THEREAFTER 600MG EVERY 6 MONTHS
     Route: 041
     Dates: start: 20211116

REACTIONS (5)
  - Demyelination [Unknown]
  - Multiple sclerosis [Unknown]
  - Mucosal hypertrophy [Unknown]
  - Spinal osteoarthritis [Unknown]
  - Paranasal sinus hypersecretion [Unknown]
